FAERS Safety Report 7968498-X (Version None)
Quarter: 2011Q4

REPORT INFORMATION
  Report Type: 
  Country: None (occurrence: None)
  Receive Date: 20111209
  Receipt Date: 20111129
  Transmission Date: 20120403
  Serious: Yes (Other)
  Sender: FDA-Public Use
  Company Number: US-JNJFOC-20111202630

PATIENT
  Age: 40 Year
  Sex: Male

DRUGS (2)
  1. ASPIRIN [Suspect]
     Indication: PRODUCT USED FOR UNKNOWN INDICATION
  2. ASPIRIN [Suspect]

REACTIONS (13)
  - ANGIOEDEMA [None]
  - WHEEZING [None]
  - NASAL CONGESTION [None]
  - CHEST DISCOMFORT [None]
  - RESPIRATORY DISORDER [None]
  - ERYTHEMA [None]
  - URTICARIA [None]
  - PRURITUS [None]
  - THROAT TIGHTNESS [None]
  - DYSPHAGIA [None]
  - TACHYCARDIA [None]
  - PEAK EXPIRATORY FLOW RATE DECREASED [None]
  - DYSPNOEA [None]
